FAERS Safety Report 10443863 (Version 2)
Quarter: 2014Q3

REPORT INFORMATION
  Report Type: Spontaneous
  Country: CO (occurrence: CO)
  Receive Date: 20140910
  Receipt Date: 20140910
  Transmission Date: 20150326
  Serious: Yes (Other)
  Sender: FDA-Public Use
  Company Number: CO-MERCK-1408COL013075

PATIENT
  Age: 47 Year
  Sex: Male
  Weight: 63 kg

DRUGS (8)
  1. RALTEGRAVIR POTASSIUM [Concomitant]
     Active Substance: RALTEGRAVIR POTASSIUM
     Indication: HIV INFECTION
     Dosage: 400 MG, Q12H
     Route: 048
  2. REBETOL [Suspect]
     Active Substance: RIBAVIRIN
     Dosage: 400 MG, QD
     Route: 048
     Dates: start: 201408
  3. ABACAVIR [Concomitant]
     Active Substance: ABACAVIR
     Dosage: 600 MG, QD
     Route: 048
  4. PEGINTRON [Suspect]
     Active Substance: PEGINTERFERON ALFA-2B
     Dosage: 60 MICROGRAM, QW
     Route: 058
     Dates: start: 201408
  5. VICTRELIS [Suspect]
     Active Substance: BOCEPREVIR
     Dosage: UNK
     Route: 048
     Dates: start: 20140519
  6. REBETOL [Suspect]
     Active Substance: RIBAVIRIN
     Dosage: UNK
     Route: 048
     Dates: start: 20140421
  7. PEGINTRON [Suspect]
     Active Substance: PEGINTERFERON ALFA-2B
     Dosage: UNK
     Route: 058
     Dates: start: 20140421
  8. LOSARTAN POTASSIUM. [Concomitant]
     Active Substance: LOSARTAN POTASSIUM
     Dosage: UNK
     Route: 048

REACTIONS (5)
  - Neutropenia [Not Recovered/Not Resolved]
  - Platelet count decreased [Unknown]
  - Red blood cell count decreased [Unknown]
  - White blood cell count decreased [Unknown]
  - Haemoglobin decreased [Unknown]

NARRATIVE: CASE EVENT DATE: 2014
